FAERS Safety Report 9713570 (Version 1)
Quarter: 2013Q4

REPORT INFORMATION
  Report Type: Report from Study
  Country: US (occurrence: US)
  Receive Date: 20131126
  Receipt Date: 20131126
  Transmission Date: 20140711
  Serious: No
  Sender: FDA-Public Use
  Company Number: US-JNJFOC-20131111636

PATIENT
  Sex: 0

DRUGS (1)
  1. STELARA [Suspect]
     Indication: GUTTATE PSORIASIS
     Route: 058

REACTIONS (1)
  - Guttate psoriasis [Unknown]
